FAERS Safety Report 20881329 (Version 1)
Quarter: 2022Q2

REPORT INFORMATION
  Report Type: Spontaneous
  Country: US (occurrence: US)
  Receive Date: 20220526
  Receipt Date: 20220526
  Transmission Date: 20220720
  Serious: No
  Sender: FDA-Public Use
  Company Number: US-RADIUS HEALTH INC.-2022US000083

PATIENT
  Age: 62 Year
  Sex: Female

DRUGS (5)
  1. TYMLOS [Suspect]
     Active Substance: ABALOPARATIDE
     Indication: Senile osteoporosis
     Dosage: 80 MICROGRAM, QD
     Route: 058
     Dates: start: 202111
  2. HYDROCHLOROTHIAZIDE [Concomitant]
     Active Substance: HYDROCHLOROTHIAZIDE
     Indication: Product used for unknown indication
  3. EMGALITY [Concomitant]
     Active Substance: GALCANEZUMAB-GNLM
     Indication: Product used for unknown indication
     Dosage: 120 MG MONTHLY
  4. MELATONIN [Concomitant]
     Active Substance: MELATONIN
     Indication: Product used for unknown indication
     Dosage: 5 MG QHS
  5. ANTIVERT [Concomitant]
     Active Substance: MECLIZINE HYDROCHLORIDE
     Indication: Product used for unknown indication
     Dosage: PRN

REACTIONS (8)
  - Migraine [Recovering/Resolving]
  - Syncope [Unknown]
  - Fall [Unknown]
  - Compression fracture [Unknown]
  - Micturition urgency [Unknown]
  - Blood pressure decreased [Unknown]
  - Nausea [Unknown]
  - Constipation [Unknown]

NARRATIVE: CASE EVENT DATE: 20211227
